FAERS Safety Report 20045593 (Version 1)
Quarter: 2021Q4

REPORT INFORMATION
  Report Type: Spontaneous
  Country: US (occurrence: US)
  Receive Date: 20211108
  Receipt Date: 20211108
  Transmission Date: 20220304
  Serious: Yes (Hospitalization)
  Sender: FDA-Public Use
  Company Number: US-009507513-2111USA001726

PATIENT
  Sex: Female
  Weight: 99.773 kg

DRUGS (2)
  1. KEYTRUDA [Suspect]
     Active Substance: PEMBROLIZUMAB
     Dosage: STRENGTH: 100MG/4ML VIAL
  2. LENVATINIB MESYLATE [Suspect]
     Active Substance: LENVATINIB MESYLATE
     Indication: Endometrial cancer
     Dosage: 20 MG DAILY PO
     Route: 048
     Dates: start: 202103

REACTIONS (3)
  - Drug eruption [Unknown]
  - Pyrexia [Unknown]
  - SARS-CoV-2 test false positive [Unknown]

NARRATIVE: CASE EVENT DATE: 20210101
